FAERS Safety Report 17967589 (Version 3)
Quarter: 2020Q3

REPORT INFORMATION
  Report Type: Spontaneous
  Country: US (occurrence: US)
  Receive Date: 20200701
  Receipt Date: 20200805
  Transmission Date: 20201103
  Serious: Yes (Hospitalization, Other)
  Sender: FDA-Public Use
  Company Number: US-TEVA-2020-US-1795786

PATIENT
  Sex: Male

DRUGS (8)
  1. TRAMADOL TEVA [Suspect]
     Active Substance: TRAMADOL
     Route: 065
  2. HYDROCODONE [Suspect]
     Active Substance: HYDROCODONE
     Route: 065
  3. PERCOCET [Suspect]
     Active Substance: ACETAMINOPHEN\OXYCODONE HYDROCHLORIDE
     Route: 065
  4. FENTANYL. [Suspect]
     Active Substance: FENTANYL
     Route: 065
  5. OXYCONTIN [Suspect]
     Active Substance: OXYCODONE HYDROCHLORIDE
     Route: 065
  6. METHADONE [Suspect]
     Active Substance: METHADONE HYDROCHLORIDE
     Route: 065
  7. OXYCODONE [Suspect]
     Active Substance: OXYCODONE
     Route: 065
  8. MORPHINE SULFATE TEVA [Suspect]
     Active Substance: MORPHINE SULFATE
     Route: 065

REACTIONS (14)
  - Fall [Unknown]
  - Dizziness [Unknown]
  - Mental disorder [Unknown]
  - Sciatica [Unknown]
  - Anxiety [Unknown]
  - Hallucination [Unknown]
  - Overdose [Unknown]
  - Sciatic nerve injury [Unknown]
  - Disorientation [Unknown]
  - Dreamy state [Unknown]
  - Impaired quality of life [Unknown]
  - Gait inability [Unknown]
  - Drug ineffective [Unknown]
  - Loss of consciousness [Unknown]
